FAERS Safety Report 5165808-6 (Version None)
Quarter: 2006Q4

REPORT INFORMATION
  Report Type: 
  Country: None (occurrence: None)
  Receive Date: 20061128
  Receipt Date: 20061114
  Transmission Date: 20070319
  Serious: Yes (Death, Hospitalization)
  Sender: FDA-Public Use
  Company Number: RENA-11877

PATIENT
  Age: 44 Year
  Sex: Female

DRUGS (7)
  1. RENAGEL [Suspect]
     Indication: HYPERPHOSPHATAEMIA
     Dosage: 9.6 G DAILY PO
     Route: 048
     Dates: start: 20051125, end: 20060721
  2. VENOFER [Concomitant]
  3. ALFACALCIDOL [Concomitant]
  4. NEORECORMON [Concomitant]
  5. IRBESARTAN [Concomitant]
  6. MOVICOL [Concomitant]
  7. OMEPRAZOLE [Concomitant]

REACTIONS (11)
  - ABDOMINAL DISCOMFORT [None]
  - ABDOMINAL DISTENSION [None]
  - ABDOMINAL PAIN [None]
  - BLOOD PRESSURE DECREASED [None]
  - CONSTIPATION [None]
  - FAECALOMA [None]
  - HYPERCALCAEMIA [None]
  - INTESTINAL DILATATION [None]
  - INTESTINAL OBSTRUCTION [None]
  - PELVIC FLUID COLLECTION [None]
  - THERAPY NON-RESPONDER [None]
